FAERS Safety Report 12420529 (Version 1)
Quarter: 2016Q2

REPORT INFORMATION
  Report Type: Report from Study
  Country: CA (occurrence: CA)
  Receive Date: 20160531
  Receipt Date: 20160531
  Transmission Date: 20160815
  Serious: Yes (Hospitalization)
  Sender: FDA-Public Use
  Company Number: CA-JNJFOC-20160426543

PATIENT
  Age: 27 Year
  Sex: Female
  Weight: 76 kg

DRUGS (4)
  1. SIMPONI [Suspect]
     Active Substance: GOLIMUMAB
     Indication: CROHN^S DISEASE
     Dosage: ONCE 4 WEEKS FOR 52 WEEKS
     Route: 058
     Dates: start: 200908
  2. SIMPONI [Suspect]
     Active Substance: GOLIMUMAB
     Indication: COLITIS ULCERATIVE
     Dosage: ONCE 4 WEEKS FOR 52 WEEKS
     Route: 058
     Dates: start: 200908
  3. MORPHINE [Concomitant]
     Active Substance: MORPHINE
     Dosage: AS NECESSARY
     Route: 048
  4. PREDNISONE. [Concomitant]
     Active Substance: PREDNISONE
     Route: 065

REACTIONS (5)
  - Abscess [Unknown]
  - Off label use [Unknown]
  - Abdominal pain [Recovered/Resolved]
  - Gastrointestinal disorder [Unknown]
  - Product use issue [Unknown]

NARRATIVE: CASE EVENT DATE: 200908
